FAERS Safety Report 9446034 (Version 1)
Quarter: 2013Q3

REPORT INFORMATION
  Report Type: Spontaneous
  Country: US (occurrence: US)
  Receive Date: 20130807
  Receipt Date: 20130807
  Transmission Date: 20140515
  Serious: Yes (Hospitalization, Other)
  Sender: FDA-Public Use
  Company Number: US-ASTRAZENECA-2010SE44180

PATIENT
  Age: 54 Year
  Sex: Female
  Weight: 62.6 kg

DRUGS (18)
  1. NEXIUM [Suspect]
     Indication: GASTRIC ULCER
     Route: 048
     Dates: end: 201306
  2. NEXIUM [Suspect]
     Indication: HIATUS HERNIA
     Route: 048
     Dates: end: 201306
  3. CRESTOR [Suspect]
     Indication: BLOOD CHOLESTEROL INCREASED
     Route: 048
  4. PRILOSEC OTC [Suspect]
     Route: 048
  5. ZANTAC [Concomitant]
  6. PEPTO BISMOL [Concomitant]
  7. ACTONEL [Concomitant]
  8. TEMAZEPAM [Concomitant]
  9. CLONAZEPAM [Concomitant]
     Indication: ANXIETY
     Route: 048
  10. ADVAIR [Concomitant]
     Indication: BRONCHITIS
     Dosage: 250/50 DAILY
     Route: 048
  11. SYNTHROID [Concomitant]
     Indication: THYROID DISORDER
     Route: 048
  12. SINGULAIR [Concomitant]
  13. TRAMADOL [Concomitant]
     Indication: PAIN
     Dosage: Q4H
     Route: 048
  14. CYCLOBENZAPINE [Concomitant]
     Indication: PAIN
     Route: 048
  15. FENOFIBRATE [Concomitant]
     Indication: BLOOD CHOLESTEROL INCREASED
     Route: 048
  16. PRISTIQ [Concomitant]
     Indication: DEPRESSION
     Route: 048
  17. TRIAZOLAM [Concomitant]
     Indication: SLEEP DISORDER
     Route: 048
  18. HYDROCODONE [Concomitant]
     Indication: PAIN
     Dosage: PRN
     Route: 048

REACTIONS (29)
  - Abdominal adhesions [Unknown]
  - Irritable bowel syndrome [Unknown]
  - Hypertension [Unknown]
  - Gastrooesophageal reflux disease [Not Recovered/Not Resolved]
  - Hypothyroidism [Unknown]
  - Dysthymic disorder [Unknown]
  - Vomiting [Unknown]
  - Cerebral haemorrhage [Unknown]
  - Aneurysm ruptured [Unknown]
  - Intervertebral disc disorder [Unknown]
  - Blindness [Unknown]
  - Amnesia [Unknown]
  - Abdominal pain [Unknown]
  - Nausea [Unknown]
  - Abdominal distension [Unknown]
  - Dyspepsia [Unknown]
  - Ulcer [Unknown]
  - Spinal pain [Unknown]
  - Gastritis [Unknown]
  - Hiatus hernia [Unknown]
  - Gastric ulcer [Unknown]
  - Haemorrhoids [Unknown]
  - Thyroid disorder [Unknown]
  - Blood cholesterol increased [Unknown]
  - Eating disorder [Unknown]
  - Abdominal pain upper [Unknown]
  - Abdominal discomfort [Not Recovered/Not Resolved]
  - Drug dose omission [Unknown]
  - Drug ineffective [Unknown]
